FAERS Safety Report 7692727-3 (Version None)
Quarter: 2011Q3

REPORT INFORMATION
  Report Type: 
  Country: None (occurrence: None)
  Receive Date: 20110819
  Receipt Date: 20110815
  Transmission Date: 20111222
  Serious: No
  Sender: FDA-Public Use
  Company Number: US-PFIZER INC-2011186294

PATIENT
  Sex: Female

DRUGS (12)
  1. NIFEDIPINE [Suspect]
     Dosage: UNK
     Route: 048
  2. WELCHOL [Concomitant]
     Indication: DIARRHOEA
     Dosage: 625 MG, 3X/DAY
  3. OMEPRAZOLE [Concomitant]
     Dosage: 20 MG, 2X/DAY
  4. DYAZIDE [Concomitant]
     Indication: DIURETIC THERAPY
     Dosage: 37.5/25 MG, 2X/DAY
  5. CARVEDILOL [Concomitant]
  6. METFORMIN [Concomitant]
     Indication: DIABETES MELLITUS
     Dosage: 1000 MG, 2X/DAY
  7. ZETIA [Concomitant]
     Indication: HEPATIC STEATOSIS
     Dosage: 10 MG, DAILY
  8. NASONEX [Concomitant]
     Dosage: 50 UG, DAILY
  9. NIFEDIPINE [Suspect]
     Indication: HYPERTENSION
     Dosage: 30 MG, 1X/DAY
     Route: 048
     Dates: start: 20110315
  10. CARVEDILOL [Concomitant]
     Indication: HYPERTENSION
     Dosage: 12.5 MG, 2X/DAY
     Route: 048
  11. FEXOFENADINE [Concomitant]
     Dosage: 180 MG, DAILY
  12. SERTRALINE [Concomitant]
     Indication: NERVOUS SYSTEM DISORDER
     Dosage: ONE AND HALF PILL OF 50MG DAILY

REACTIONS (2)
  - BLOOD PRESSURE SYSTOLIC INCREASED [None]
  - MEDICATION RESIDUE [None]
